FAERS Safety Report 5050100-0 (Version None)
Quarter: 2006Q3

REPORT INFORMATION
  Report Type: 
  Country: None (occurrence: None)
  Receive Date: 20060706
  Receipt Date: 20060622
  Transmission Date: 20061208
  Serious: Yes (Other)
  Sender: FDA-Public Use
  Company Number: 200612272BWH

PATIENT
  Age: 78 Year
  Sex: Female

DRUGS (9)
  1. AVELOX [Suspect]
     Indication: BRONCHITIS
     Dosage: 400 MG, QD, INTRAVENOUS
     Route: 042
     Dates: start: 20060408, end: 20060410
  2. ZOSYN [Concomitant]
  3. LINEZOLID [Concomitant]
  4. D51/2NS KCL [Concomitant]
  5. D5NS KCL [Concomitant]
  6. D10 [Concomitant]
  7. D5 1/2NS [Concomitant]
  8. PREDNISONE TAB [Concomitant]
  9. DEXTROSE [Concomitant]

REACTIONS (1)
  - BLOOD GLUCOSE DECREASED [None]
